FAERS Safety Report 5228833-2 (Version None)
Quarter: 2007Q1

REPORT INFORMATION
  Report Type: 
  Country: None (occurrence: None)
  Receive Date: 20070131
  Receipt Date: 20070119
  Transmission Date: 20070707
  Serious: Yes (Hospitalization)
  Sender: FDA-Public Use
  Company Number: 07-000141

PATIENT
  Age: 78 Year
  Sex: Female

DRUGS (1)
  1. DORYX [Suspect]
     Indication: ACUTE SINUSITIS
     Dosage: 100 MG, ORAL
     Route: 048
     Dates: end: 20070101

REACTIONS (2)
  - DEHYDRATION [None]
  - SENSORY DISTURBANCE [None]
